FAERS Safety Report 4439111-3 (Version None)
Quarter: 2004Q3

REPORT INFORMATION
  Report Type: 
  Country: None (occurrence: None)
  Receive Date: 20040901
  Receipt Date: 20040126
  Transmission Date: 20050211
  Serious: Yes (Other)
  Sender: FDA-Public Use
  Company Number: FR-BRISTOL-MYERS SQUIBB COMPANY-12499257

PATIENT
  Age: 38 Year
  Sex: Female
  Weight: 56 kg

DRUGS (3)
  1. SUSTIVA [Suspect]
     Indication: HIV TEST POSITIVE
     Dosage: STOPPED 02-JAN-2004, RESTARTED 26-JAN-2004
     Route: 048
     Dates: start: 20010401
  2. COMBIVIR [Suspect]
     Indication: HIV TEST POSITIVE
     Dosage: 300/600 MG/DAY INTERRUPTED FROM 02-JAN-2004 TO 26-JAN-2004.
     Route: 048
     Dates: start: 20010401
  3. KALETRA [Suspect]
     Indication: HIV INFECTION
     Route: 048
     Dates: start: 20040126

REACTIONS (6)
  - DRUG EXPOSURE DURING PREGNANCY [None]
  - POLYHYDRAMNIOS [None]
  - PREGNANCY [None]
  - PREMATURE BABY [None]
  - RUBELLA ANTIBODY POSITIVE [None]
  - SYPHILIS TEST POSITIVE [None]
